FAERS Safety Report 8336263-X (Version None)
Quarter: 2012Q2

REPORT INFORMATION
  Report Type: 
  Country: None (occurrence: None)
  Receive Date: 20120504
  Receipt Date: 20120430
  Transmission Date: 20120825
  Serious: Yes (Hospitalization, Other)
  Sender: FDA-Public Use
  Company Number: AU-PFIZER INC-2012089536

PATIENT
  Age: 63 Year
  Sex: Male

DRUGS (7)
  1. ENDEP [Concomitant]
  2. CARTIA XT [Concomitant]
  3. KARVEA [Concomitant]
  4. ZYDOL - SLOW RELEASE [Concomitant]
     Dosage: 100 MG, AS NEEDED
  5. ZYLOPRIM [Concomitant]
  6. ATORVASTATIN CALCIUM [Suspect]
     Dosage: 40 MG, 1X/DAY
     Route: 048
  7. SPIRIVA [Concomitant]

REACTIONS (5)
  - HYPOAESTHESIA ORAL [None]
  - RASH ERYTHEMATOUS [None]
  - HYPERSENSITIVITY [None]
  - PRURITUS [None]
  - OEDEMA MOUTH [None]
